FAERS Safety Report 16175642 (Version 4)
Quarter: 2019Q4

REPORT INFORMATION
  Report Type: Report from Study
  Country: CO (occurrence: CO)
  Receive Date: 20190409
  Receipt Date: 20191119
  Transmission Date: 20200122
  Serious: Yes (Life-Threatening, Hospitalization, Other)
  Sender: FDA-Public Use
  Company Number: CO-INCYTE CORPORATION-2018IN013481

PATIENT

DRUGS (3)
  1. JAKAVI [Suspect]
     Active Substance: RUXOLITINIB
     Dosage: 20 MG, Q8H
     Route: 048
  2. JAKAVI [Suspect]
     Active Substance: RUXOLITINIB
     Dosage: 40 MG, QD
     Route: 048
  3. JAKAVI [Suspect]
     Active Substance: RUXOLITINIB
     Indication: POLYCYTHAEMIA VERA
     Dosage: 20 MG, QD
     Route: 048

REACTIONS (12)
  - Device occlusion [Unknown]
  - Pulmonary oedema [Unknown]
  - Hypersensitivity [Unknown]
  - Chest pain [Unknown]
  - Infarction [Unknown]
  - Inappropriate schedule of product administration [Unknown]
  - Blood uric acid increased [Unknown]
  - Influenza [Unknown]
  - Prescribed overdose [Unknown]
  - Lung disorder [Unknown]
  - Blister [Unknown]
  - Platelet count increased [Unknown]

NARRATIVE: CASE EVENT DATE: 2004
